FAERS Safety Report 4594169-6 (Version None)
Quarter: 2005Q1

REPORT INFORMATION
  Report Type: 
  Country: None (occurrence: None)
  Receive Date: 20050301
  Receipt Date: 20041208
  Transmission Date: 20050727
  Serious: Yes (Disabling)
  Sender: FDA-Public Use
  Company Number: AU-GLAXOSMITHKLINE-B0361828A

PATIENT
  Age: 38 Year
  Sex: Female

DRUGS (5)
  1. ZYBAN [Suspect]
     Dosage: 150MG TWICE PER DAY
     Route: 048
     Dates: start: 20041124, end: 20041203
  2. HALDOL DECANOATE [Concomitant]
     Indication: SCHIZOPHRENIA
     Dosage: 100MG EVERY TWO WEEKS
     Route: 030
  3. ARTANE [Concomitant]
     Indication: RESTLESSNESS
     Dosage: 5MG THREE TIMES PER DAY
  4. TEGRETOL [Concomitant]
     Dosage: 400MG TWICE PER DAY
     Route: 065
  5. LEXAPRO [Concomitant]

REACTIONS (5)
  - AGITATION [None]
  - DEPRESSION [None]
  - FEELING OF DESPAIR [None]
  - RESTLESSNESS [None]
  - TEARFULNESS [None]
